FAERS Safety Report 10010399 (Version 1)
Quarter: 2014Q1

REPORT INFORMATION
  Report Type: Spontaneous
  Country: US (occurrence: US)
  Receive Date: 20140314
  Receipt Date: 20140314
  Transmission Date: 20141002
  Serious: No
  Sender: FDA-Public Use
  Company Number: US-BIOGENIDEC-2014BI022747

PATIENT
  Sex: Female

DRUGS (2)
  1. TYSABRI [Suspect]
     Indication: MULTIPLE SCLEROSIS
     Route: 042
     Dates: start: 20100202, end: 20110526
  2. TYSABRI [Suspect]
     Indication: MULTIPLE SCLEROSIS
     Route: 042
     Dates: start: 20120824, end: 20131119

REACTIONS (5)
  - White blood cell count increased [Recovered/Resolved]
  - Hypoaesthesia [Unknown]
  - Contusion [Unknown]
  - Toe operation [Recovered/Resolved]
  - Pyrexia [Recovered/Resolved]
